FAERS Safety Report 24777383 (Version 2)
Quarter: 2025Q1

REPORT INFORMATION
  Report Type: Spontaneous
  Country: US (occurrence: US)
  Receive Date: 20241226
  Receipt Date: 20250107
  Transmission Date: 20250408
  Serious: Yes (Other)
  Sender: CHATTEM
  Company Number: US-MLMSERVICE-20241211-PI292701-00177-1

PATIENT
  Age: 21 Year
  Sex: Female

DRUGS (2)
  1. HYDROCORTISONE [Suspect]
     Active Substance: HYDROCORTISONE
     Indication: Foetal growth restriction
     Dosage: 2.5 MG, Q8H,8.6 MG/M2/DAY
  2. FLUDROCORTISONE [Suspect]
     Active Substance: FLUDROCORTISONE
     Indication: Adrenocortical insufficiency acute
     Dosage: 0.05 MG, QD

REACTIONS (2)
  - Steroid diabetes [Recovering/Resolving]
  - Hyperglycaemia [Recovering/Resolving]
